FAERS Safety Report 5479573-6 (Version None)
Quarter: 2007Q3

REPORT INFORMATION
  Report Type: 
  Country: None (occurrence: None)
  Receive Date: 20070906
  Receipt Date: 20070326
  Transmission Date: 20080115
  Serious: Yes (Other)
  Sender: FDA-Public Use
  Company Number: HQWYE812327MAR07

PATIENT
  Age: 49 Year
  Sex: Female
  Weight: 52.21 kg

DRUGS (1)
  1. ADVIL [Suspect]
     Indication: HEADACHE
     Dosage: 2 CAPSULES ONE TIME, ORAL
     Route: 048
     Dates: start: 20070324, end: 20070324

REACTIONS (2)
  - ANAPHYLACTIC SHOCK [None]
  - RASH [None]
